FAERS Safety Report 6684911-2 (Version None)
Quarter: 2010Q2

REPORT INFORMATION
  Report Type: 
  Country: None (occurrence: None)
  Receive Date: 20100416
  Receipt Date: 20100412
  Transmission Date: 20101027
  Serious: Yes (Hospitalization)
  Sender: FDA-Public Use
  Company Number: FR-JNJFOC-20100301476

PATIENT
  Age: 46 Year
  Sex: Female

DRUGS (8)
  1. REMICADE [Suspect]
     Indication: ANKYLOSING SPONDYLITIS
     Dosage: 3RD INFUSION
     Route: 042
  2. REMICADE [Suspect]
     Route: 042
  3. REMICADE [Suspect]
     Route: 042
  4. REMICADE [Suspect]
     Route: 042
  5. REMICADE [Suspect]
     Indication: CROHN'S DISEASE
     Route: 042
  6. REMICADE [Suspect]
     Route: 042
  7. REMICADE [Suspect]
     Route: 042
  8. REMICADE [Suspect]
     Dosage: 3RD INFUSION
     Route: 042

REACTIONS (8)
  - ABDOMINAL PAIN [None]
  - BLOOD PRESSURE DECREASED [None]
  - DIARRHOEA [None]
  - HYPERSENSITIVITY [None]
  - MICROCYTIC ANAEMIA [None]
  - ORAL CANDIDIASIS [None]
  - PARAESTHESIA [None]
  - SERUM SICKNESS [None]
